FAERS Safety Report 19236684 (Version 3)
Quarter: 2021Q3

REPORT INFORMATION
  Report Type: Spontaneous
  Country: GR (occurrence: GR)
  Receive Date: 20210510
  Receipt Date: 20210703
  Transmission Date: 20211014
  Serious: Yes (Other)
  Sender: FDA-Public Use
  Company Number: GR-YILING-GR-2021-YPL-00026

PATIENT
  Age: 49 Year
  Sex: Male

DRUGS (7)
  1. SILDENAFIL CITRATE. [Suspect]
     Active Substance: SILDENAFIL CITRATE
     Indication: APHRODISIAC THERAPY
  2. ATAZANAVIR. [Concomitant]
     Active Substance: ATAZANAVIR
  3. EMTRICITABINE;TENOFOVIR [Concomitant]
     Active Substance: EMTRICITABINE\TENOFOVIR
  4. RITONAVIR. [Concomitant]
     Active Substance: RITONAVIR
  5. CETIRIZINE [Interacting]
     Active Substance: CETIRIZINE HYDROCHLORIDE
     Indication: DERMATITIS CONTACT
  6. CETIRIZINE [Interacting]
     Active Substance: CETIRIZINE HYDROCHLORIDE
  7. BALNEUM [POLIDOCANOL;UREA] [Interacting]
     Active Substance: POLIDOCANOL\UREA
     Indication: ERYTHEMA MULTIFORME

REACTIONS (3)
  - Erythema multiforme [Recovering/Resolving]
  - Product use in unapproved indication [Unknown]
  - Drug hypersensitivity [Unknown]
